FAERS Safety Report 10171477 (Version 1)
Quarter: 2014Q2

REPORT INFORMATION
  Report Type: Spontaneous
  Country: US (occurrence: None)
  Receive Date: 20140428
  Receipt Date: 20140428
  Transmission Date: 20141212
  Serious: Yes (Other)
  Sender: FDA-Public Use
  Company Number: PHEH2013US026185

PATIENT
  Age: 38 Year
  Sex: Female
  Weight: 126.1 kg

DRUGS (1)
  1. GILENYA [Suspect]
     Route: 048

REACTIONS (5)
  - Bronchitis [None]
  - Blood cholesterol increased [None]
  - Low density lipoprotein increased [None]
  - Monocyte count increased [None]
  - Lymphocyte count decreased [None]
